FAERS Safety Report 7333672 (Version 2)
Quarter: 2012Q4

REPORT INFORMATION
  Report Type: 
  Country: GB (occurrence: GB)
  Receive Date: 20100326
  Receipt Date: 20120924
  Transmission Date: 20130627
  Serious: Yes (Hospitalization, Other)
  Sender: FDA-Public Use
  Company Number: GB-PFIZER INC-2010034320

PATIENT
  Age: 45 Year
  Sex: Female

DRUGS (9)
  1. DOXORUBICIN [Suspect]
     Indication: BREAST CANCER METASTATIC
     Dosage: 50 mg/m2, cyclic
     Route: 042
  2. DOCETAXEL [Interacting]
     Indication: BREAST CANCER METASTATIC
     Dosage: 75 mg/m2, cyclic
  3. GRANISETRON [Concomitant]
     Indication: ANTIEMETIC SUPPORTIVE CARE
  4. DEXAMETHASONE [Concomitant]
     Indication: ANTIEMETIC SUPPORTIVE CARE
  5. OMEPRAZOLE [Concomitant]
  6. MORPHINE SULFATE [Concomitant]
  7. IBUPROFEN [Concomitant]
  8. METOCLOPRAMIDE [Concomitant]
  9. ERYTHROMYCIN [Concomitant]
     Indication: PROPHYLAXIS

REACTIONS (2)
  - Jaundice cholestatic [Recovered/Resolved]
  - Pseudomembranous colitis [Recovered/Resolved]
